FAERS Safety Report 7715001-5 (Version None)
Quarter: 2011Q3

REPORT INFORMATION
  Report Type: 
  Country: None (occurrence: None)
  Receive Date: 20110829
  Receipt Date: 20110706
  Transmission Date: 20111222
  Serious: No
  Sender: FDA-Public Use
  Company Number: US-ASTRAZENECA-2011SE40372

PATIENT
  Age: 59 Year
  Sex: Female
  Weight: 81.6 kg

DRUGS (5)
  1. VIMOVO [Suspect]
     Indication: OSTEOARTHRITIS
     Dosage: 500/20 MG, TWICE A DAY
     Route: 048
  2. VIMOVO [Suspect]
     Dosage: 500/20 MG, DAILY
     Route: 048
  3. VIMOVO [Suspect]
     Dosage: 500/20 MG, DAILY
     Route: 048
  4. OXYCODIENE [Concomitant]
     Indication: PAIN
  5. VIMOVO [Suspect]
     Indication: RHEUMATOID ARTHRITIS
     Dosage: 500/20 MG, TWICE A DAY
     Route: 048

REACTIONS (2)
  - PAIN [None]
  - DYSPEPSIA [None]
